FAERS Safety Report 9957584 (Version 1)
Quarter: 2014Q1

REPORT INFORMATION
  Report Type: Report from Study
  Country: US (occurrence: US)
  Receive Date: 20140304
  Receipt Date: 20140304
  Transmission Date: 20141002
  Serious: No
  Sender: FDA-Public Use
  Company Number: US-ABBVIE-13P-163-1095901-00

PATIENT
  Age: 58 Year
  Sex: Female

DRUGS (9)
  1. HUMIRA [Suspect]
     Indication: CROHN^S DISEASE
     Dates: start: 20130214
  2. RECLAST [Concomitant]
     Indication: OSTEOPOROSIS
  3. KLONOPIN [Concomitant]
     Indication: SLEEP DISORDER
     Dosage: AT NIGHT
  4. ZANTAC [Concomitant]
     Indication: OESOPHAGEAL SPASM
  5. ZANTAC [Concomitant]
     Indication: GASTROOESOPHAGEAL REFLUX DISEASE
  6. PRILOSEC [Concomitant]
     Indication: OESOPHAGEAL SPASM
     Dosage: 40MG DAILY
  7. PRILOSEC [Concomitant]
     Indication: GASTROOESOPHAGEAL REFLUX DISEASE
  8. ADDERALL [Concomitant]
     Indication: ATTENTION DEFICIT/HYPERACTIVITY DISORDER
     Dosage: TOTAL IN A DAY
  9. FENTANYL PATCH [Concomitant]
     Indication: PAIN
     Dosage: CHANGE EVERY 2 OR 3 DAYS

REACTIONS (1)
  - Contusion [Not Recovered/Not Resolved]
